FAERS Safety Report 13302032 (Version 1)
Quarter: 2017Q1

REPORT INFORMATION
  Report Type: Spontaneous
  Country: FR (occurrence: FR)
  Receive Date: 20170307
  Receipt Date: 20170307
  Transmission Date: 20170428
  Serious: Yes (Death, Hospitalization)
  Sender: FDA-Public Use
  Company Number: FR-PFIZER INC-2017093410

PATIENT
  Age: 92 Year
  Sex: Male

DRUGS (14)
  1. LYRICA [Suspect]
     Active Substance: PREGABALIN
     Dosage: 25 MG, 1X/DAY IN THE MORNING
     Route: 048
     Dates: start: 20170118, end: 201701
  2. LASILIX /00032601/ [Concomitant]
     Active Substance: FUROSEMIDE
  3. LYRICA [Suspect]
     Active Substance: PREGABALIN
     Dosage: 50 MG, 2X/DAY IN THE MORNING AND IN THE EVENING
     Route: 048
     Dates: start: 20170114, end: 20170115
  4. LAMALINE [Suspect]
     Active Substance: ACETAMINOPHEN\CAFFEINE\OPIUM
     Dosage: UNK
     Dates: start: 201701, end: 201701
  5. MOVICOL [Concomitant]
     Active Substance: POLYETHYLENE GLYCOL 3350\POTASSIUM CHLORIDE\SODIUM BICARBONATE\SODIUM CHLORIDE
  6. LYRICA [Suspect]
     Active Substance: PREGABALIN
     Dosage: 50 MG, 1X/DAY IN THE MORNING
     Route: 048
     Dates: start: 20170116, end: 20170117
  7. LYRICA [Suspect]
     Active Substance: PREGABALIN
     Indication: LUMBAR SPINAL STENOSIS
     Dosage: UNK
     Route: 048
  8. LYRICA [Suspect]
     Active Substance: PREGABALIN
     Dosage: 150 MG, 2X/DAY IN THE MORNING AND IN THE EVENING
     Route: 048
     Dates: start: 20170106, end: 20170113
  9. CORDARONE [Concomitant]
     Active Substance: AMIODARONE HYDROCHLORIDE
  10. ATORVASTATIN [Concomitant]
     Active Substance: ATORVASTATIN
  11. BISOCE [Concomitant]
     Active Substance: BISOPROLOL
  12. PLAVIX [Concomitant]
     Active Substance: CLOPIDOGREL BISULFATE
  13. DAFALGAN [Concomitant]
     Active Substance: ACETAMINOPHEN
  14. TAMSULOSIN [Concomitant]
     Active Substance: TAMSULOSIN

REACTIONS (7)
  - Disease progression [Fatal]
  - Deep vein thrombosis [Unknown]
  - Pulmonary embolism [Unknown]
  - Dyskinesia [Recovered/Resolved]
  - Pneumonia [Unknown]
  - Cardiac failure [Unknown]
  - Bronchitis viral [Unknown]

NARRATIVE: CASE EVENT DATE: 2015
